FAERS Safety Report 25136260 (Version 1)
Quarter: 2025Q1

REPORT INFORMATION
  Report Type: Spontaneous
  Country: PT (occurrence: PT)
  Receive Date: 20250328
  Receipt Date: 20250328
  Transmission Date: 20250409
  Serious: Yes (Other)
  Sender: NOVO NORDISK
  Company Number: PT-NOVOPROD-1397935

PATIENT
  Age: 65 Year
  Sex: Female

DRUGS (3)
  1. TRESIBA [Suspect]
     Active Substance: INSULIN DEGLUDEC
     Indication: Diabetes mellitus
  2. INSULIN ASPART [Suspect]
     Active Substance: INSULIN ASPART
     Indication: Diabetes mellitus
  3. METFORMIN [Concomitant]
     Active Substance: METFORMIN HYDROCHLORIDE
     Indication: Diabetes mellitus

REACTIONS (8)
  - Demyelinating polyneuropathy [Recovered/Resolved]
  - Allodynia [Recovered/Resolved]
  - Constipation [Unknown]
  - Abdominal distension [Unknown]
  - Pruritus [Unknown]
  - Skin burning sensation [Unknown]
  - Hypoglycaemia [Unknown]
  - Blood glucose increased [Unknown]
